FAERS Safety Report 7541521-2 (Version None)
Quarter: 2011Q2

REPORT INFORMATION
  Report Type: 
  Country: None (occurrence: None)
  Receive Date: 20110613
  Receipt Date: 20110606
  Transmission Date: 20111010
  Serious: Yes (Other)
  Sender: FDA-Public Use
  Company Number: CA-BRISTOL-MYERS SQUIBB COMPANY-15823537

PATIENT
  Age: 53 Year
  Sex: Male

DRUGS (2)
  1. CISPLATIN [Suspect]
     Indication: LUNG ADENOCARCINOMA
     Dosage: DAY 1
     Route: 042
  2. VINORELBINE [Suspect]
     Indication: LUNG ADENOCARCINOMA
     Dosage: DAYS 1 AND 8

REACTIONS (1)
  - AORTIC THROMBOSIS [None]
